FAERS Safety Report 15466138 (Version 1)
Quarter: 2018Q4

REPORT INFORMATION
  Report Type: Spontaneous
  Country: US (occurrence: US)
  Receive Date: 20181004
  Receipt Date: 20181004
  Transmission Date: 20190204
  Serious: Yes (Hospitalization)
  Sender: FDA-Public Use
  Company Number: US-BAYER-2018-182157

PATIENT
  Age: 68 Year
  Sex: Male

DRUGS (2)
  1. NEXAVAR [Suspect]
     Active Substance: SORAFENIB
     Indication: ACUTE MYELOID LEUKAEMIA
  2. TACROLIMUS. [Suspect]
     Active Substance: TACROLIMUS

REACTIONS (4)
  - Hypertriglyceridaemia [None]
  - Off label use [None]
  - Product use in unapproved indication [None]
  - Pancreatitis acute [None]
